FAERS Safety Report 23299378 (Version 1)
Quarter: 2023Q4

REPORT INFORMATION
  Report Type: Spontaneous
  Country: US (occurrence: US)
  Receive Date: 20231215
  Receipt Date: 20231215
  Transmission Date: 20240110
  Serious: No
  Sender: FDA-Public Use
  Company Number: US-ABBVIE-2303451US

PATIENT
  Sex: Male

DRUGS (2)
  1. BOTOX [Suspect]
     Active Substance: ONABOTULINUMTOXINA
     Indication: Neuralgia
     Dosage: TIME INTERVAL: AS NECESSARY
  2. BOTOX [Suspect]
     Active Substance: ONABOTULINUMTOXINA
     Indication: Neuralgia
     Dosage: TIME INTERVAL: AS NECESSARY

REACTIONS (1)
  - Therapeutic response decreased [Unknown]
